FAERS Safety Report 9600704 (Version 1)
Quarter: 2013Q4

REPORT INFORMATION
  Report Type: Spontaneous
  Country: US (occurrence: US)
  Receive Date: 20131004
  Receipt Date: 20131004
  Transmission Date: 20140711
  Serious: No
  Sender: FDA-Public Use
  Company Number: US-AMGEN-USASP2013036540

PATIENT
  Age: 42 Year
  Sex: Male
  Weight: 84.35 kg

DRUGS (13)
  1. ENBREL [Suspect]
     Indication: PRODUCT USED FOR UNKNOWN INDICATION
     Dosage: 50 MG, QWK
     Route: 058
     Dates: end: 20130515
  2. AMBIEN [Concomitant]
     Dosage: 5 MG, UNK
  3. VITAMIN B1 [Concomitant]
     Dosage: 100 MG, UNK
  4. VITAMIN B12                        /00056201/ [Concomitant]
     Dosage: 100 MUG, UNK
  5. BIOTIN [Concomitant]
     Dosage: 5000, UNK
  6. MULTICAPS [Concomitant]
     Dosage: UNK
  7. CITRACAL                           /00751520/ [Concomitant]
     Dosage: UNK
  8. IMIPRAMINE HCL [Concomitant]
     Dosage: 10 MG, UNK
  9. ZYRTEC [Concomitant]
     Dosage: 10 MG, UNK
  10. ASTEPRO [Concomitant]
     Dosage: 0.15 %, UNK
  11. RELPAX [Concomitant]
     Dosage: 20 MG, UNK
  12. IBUPROFEN [Concomitant]
     Dosage: 200 MG, UNK
  13. VICODIN [Concomitant]
     Dosage: 5-500 MG, UNK

REACTIONS (1)
  - Drug ineffective [Recovered/Resolved]
